FAERS Safety Report 7385241-6 (Version None)
Quarter: 2011Q1

REPORT INFORMATION
  Report Type: 
  Country: None (occurrence: None)
  Receive Date: 20110330
  Receipt Date: 20110322
  Transmission Date: 20110831
  Serious: Yes (Hospitalization, Disabling, Other)
  Sender: FDA-Public Use
  Company Number: US-MERCK-0907USA02550

PATIENT
  Age: 51 Year
  Sex: Female
  Weight: 53 kg

DRUGS (4)
  1. FOSAMAX [Suspect]
     Indication: OSTEOPENIA
     Route: 048
     Dates: start: 19990101, end: 20010801
  2. FOSAMAX [Suspect]
     Route: 048
     Dates: start: 20010801, end: 20081001
  3. FOSAMAX [Suspect]
     Indication: OSTEOPOROSIS
     Route: 048
     Dates: start: 19990101, end: 20010801
  4. FOSAMAX [Suspect]
     Route: 048
     Dates: start: 20010801, end: 20081001

REACTIONS (63)
  - SMEAR CERVIX ABNORMAL [None]
  - OESOPHAGEAL SPASM [None]
  - MUSCULAR WEAKNESS [None]
  - MELANOCYTIC NAEVUS [None]
  - TOOTH DISORDER [None]
  - SPINAL COLUMN STENOSIS [None]
  - MENORRHAGIA [None]
  - HAEMORRHAGIC ANAEMIA [None]
  - SPINAL DISORDER [None]
  - RESPIRATORY FAILURE [None]
  - EXOSTOSIS [None]
  - CORONARY ARTERY DISEASE [None]
  - FOOT DEFORMITY [None]
  - EYE DISORDER [None]
  - URINARY TRACT INFECTION [None]
  - TOOTH IMPACTED [None]
  - THYROID CYST [None]
  - THIRST [None]
  - CARDIAC DISORDER [None]
  - ACUTE CORONARY SYNDROME [None]
  - SKIN CANCER [None]
  - FIBROCYSTIC BREAST DISEASE [None]
  - VAGINAL INFECTION [None]
  - STRESS URINARY INCONTINENCE [None]
  - WEIGHT INCREASED [None]
  - LEFT VENTRICULAR HYPERTROPHY [None]
  - CHEST DISCOMFORT [None]
  - VAGINAL HAEMORRHAGE [None]
  - ATELECTASIS [None]
  - HYPOXIA [None]
  - EAR PAIN [None]
  - DRUG INEFFECTIVE [None]
  - DRUG HYPERSENSITIVITY [None]
  - HYPERTENSION [None]
  - HYPERLIPIDAEMIA [None]
  - GASTROOESOPHAGEAL REFLUX DISEASE [None]
  - FEMUR FRACTURE [None]
  - DYSPNOEA [None]
  - ELECTROCARDIOGRAM ST-T CHANGE [None]
  - NAUSEA [None]
  - RASH [None]
  - POOR QUALITY SLEEP [None]
  - FIBROMYALGIA [None]
  - UTERINE DISORDER [None]
  - GOITRE [None]
  - MASS [None]
  - LOW TURNOVER OSTEOPATHY [None]
  - CARDIAC MURMUR [None]
  - VITAMIN D DEFICIENCY [None]
  - MUSCULOSKELETAL PAIN [None]
  - PLANTAR FASCIITIS [None]
  - BURNING SENSATION [None]
  - ANAEMIA [None]
  - ACTIVITIES OF DAILY LIVING IMPAIRED [None]
  - PAIN [None]
  - OEDEMA PERIPHERAL [None]
  - FUNGAL INFECTION [None]
  - MALOCCLUSION [None]
  - HYPERGLYCAEMIA [None]
  - HERPES ZOSTER [None]
  - HAEMATURIA [None]
  - CONSTIPATION [None]
  - ANGINA PECTORIS [None]
